FAERS Safety Report 6271734-1 (Version None)
Quarter: 2009Q3

REPORT INFORMATION
  Report Type: 
  Country: None (occurrence: None)
  Receive Date: 20090716
  Receipt Date: 20090716
  Transmission Date: 20100115
  Serious: No
  Sender: FDA-Public Use
  Company Number: None

PATIENT
  Age: 9 Year
  Sex: Female
  Weight: 27.2158 kg

DRUGS (3)
  1. ABILIFY [Suspect]
     Indication: ANGER
     Dosage: ABILIFY AM AND PM- PO
     Route: 048
     Dates: start: 20090415, end: 20090714
  2. ABILIFY [Suspect]
     Indication: OBSESSIVE-COMPULSIVE DISORDER
     Dosage: ABILIFY AM AND PM- PO
     Route: 048
     Dates: start: 20090415, end: 20090714
  3. DAYTRANA [Suspect]
     Indication: ATTENTION DEFICIT/HYPERACTIVITY DISORDER
     Dosage: DAYTRANA PATCH AM TOP
     Route: 061
     Dates: start: 20070520, end: 20090714

REACTIONS (1)
  - MUSCLE SPASMS [None]
